FAERS Safety Report 7480780-1 (Version None)
Quarter: 2011Q2

REPORT INFORMATION
  Report Type: 
  Country: None (occurrence: None)
  Receive Date: 20110516
  Receipt Date: 20101012
  Transmission Date: 20111010
  Serious: Yes (Hospitalization, Disabling)
  Sender: FDA-Public Use
  Company Number: US-BAYER-201030639NA

PATIENT
  Age: 29 Year
  Sex: Female
  Weight: 106.58 kg

DRUGS (9)
  1. IMITREX [Concomitant]
     Indication: MIGRAINE
     Dosage: UNK
     Dates: start: 19950101
  2. YAZ [Suspect]
     Route: 048
     Dates: start: 20061101, end: 20070325
  3. MARIJUANA [Concomitant]
     Indication: MIGRAINE
     Dosage: UNK
  4. RELPAX [Concomitant]
     Indication: MIGRAINE
     Dosage: UNK UNK, PRN
     Dates: start: 19950101
  5. INDERAL [Concomitant]
     Indication: MIGRAINE
     Dosage: UNK
     Dates: start: 19950101
  6. WELLBUTRIN [Concomitant]
     Indication: DEPRESSION
     Dosage: UNK
     Dates: start: 20060101
  7. ASPIRIN [Concomitant]
  8. ALBUTEROL INHALER [Concomitant]
     Indication: BRONCHITIS
     Dosage: UNK
     Dates: start: 20060101
  9. LEVOTHYROXINE SODIUM [Concomitant]
     Indication: THYROID DISORDER
     Dosage: UNK
     Dates: start: 20050101

REACTIONS (3)
  - CEREBROVASCULAR ACCIDENT [None]
  - OPTIC NEURITIS [None]
  - BLINDNESS UNILATERAL [None]
